FAERS Safety Report 4297015-3 (Version None)
Quarter: 2004Q1

REPORT INFORMATION
  Report Type: 
  Country: None (occurrence: None)
  Receive Date: 20040217
  Receipt Date: 20040206
  Transmission Date: 20041129
  Serious: Yes (Other)
  Sender: FDA-Public Use
  Company Number: PHBS2004CA01951

PATIENT
  Sex: Female

DRUGS (1)
  1. VISKAZIDE [Suspect]
     Indication: HEART RATE INCREASED
     Dosage: PIND 10 / HCT 25 MG/DAY
     Route: 048
     Dates: start: 20040203

REACTIONS (3)
  - EXTRASYSTOLES [None]
  - HEART RATE INCREASED [None]
  - PALPITATIONS [None]
